FAERS Safety Report 22241527 (Version 4)
Quarter: 2023Q2

REPORT INFORMATION
  Report Type: Report from Study
  Country: US (occurrence: US)
  Receive Date: 20230421
  Receipt Date: 20230531
  Transmission Date: 20230721
  Serious: Yes (Other)
  Sender: FDA-Public Use
  Company Number: US-002147023-NVSC2023US090504

PATIENT
  Sex: Male
  Weight: 75.737 kg

DRUGS (12)
  1. METHOTREXATE [Suspect]
     Active Substance: METHOTREXATE
     Indication: Psoriasis
     Dosage: UNK
     Route: 048
  2. METHOTREXATE [Suspect]
     Active Substance: METHOTREXATE
     Indication: Psoriatic arthropathy
  3. MELOXICAM [Suspect]
     Active Substance: MELOXICAM
     Indication: Psoriatic arthropathy
     Dosage: UNK
     Route: 065
  4. FOLIC ACID [Suspect]
     Active Substance: FOLIC ACID
     Indication: Psoriatic arthropathy
     Dosage: UNK
     Route: 065
  5. ZINC ACETATE [Suspect]
     Active Substance: ZINC ACETATE
     Indication: Psoriatic arthropathy
     Dosage: UNK
     Route: 065
  6. VITAMIN E [Suspect]
     Active Substance: .ALPHA.-TOCOPHEROL
     Indication: Psoriatic arthropathy
     Dosage: UNK
     Route: 065
  7. VITAMIN D [Suspect]
     Active Substance: VITAMIN D NOS
     Indication: Psoriatic arthropathy
     Dosage: UNK
     Route: 065
  8. MAGNESIUM [Suspect]
     Active Substance: MAGNESIUM
     Indication: Psoriatic arthropathy
     Dosage: UNK
     Route: 065
  9. VITAMIN B [Suspect]
     Active Substance: VITAMIN B
     Indication: Psoriatic arthropathy
     Dosage: UNK
     Route: 065
  10. FISH OIL [Suspect]
     Active Substance: FISH OIL
     Indication: Psoriatic arthropathy
     Dosage: UNK
     Route: 065
  11. SULINDAC [Suspect]
     Active Substance: SULINDAC
     Indication: Psoriatic arthropathy
     Dosage: UNK
     Route: 065
  12. DEPO-MEDROL [Concomitant]
     Active Substance: METHYLPREDNISOLONE ACETATE
     Indication: Product used for unknown indication
     Dosage: UNK
     Route: 030

REACTIONS (23)
  - Polyarthritis [Unknown]
  - Arthralgia [Unknown]
  - Mouth ulceration [Unknown]
  - Musculoskeletal stiffness [Not Recovered/Not Resolved]
  - Oedema peripheral [Not Recovered/Not Resolved]
  - Oropharyngeal pain [Unknown]
  - Rhinalgia [Unknown]
  - Chest pain [Unknown]
  - Abdominal pain [Unknown]
  - Dyspepsia [Unknown]
  - Abdominal distension [Unknown]
  - Back pain [Unknown]
  - Myalgia [Unknown]
  - Synovitis [Recovering/Resolving]
  - Bursitis [Unknown]
  - Nail dystrophy [Unknown]
  - Nail pitting [Unknown]
  - Gastrointestinal disorder [Unknown]
  - Pain [Not Recovered/Not Resolved]
  - Psoriasis [Not Recovered/Not Resolved]
  - Peripheral swelling [Unknown]
  - Product use in unapproved indication [Unknown]
  - Drug ineffective [Unknown]
